FAERS Safety Report 12904035 (Version 1)
Quarter: 2016Q4

REPORT INFORMATION
  Report Type: Spontaneous
  Country: CA (occurrence: CA)
  Receive Date: 20161102
  Receipt Date: 20161102
  Transmission Date: 20170207
  Serious: Yes (Other)
  Sender: FDA-Public Use
  Company Number: CA-JNJFOC-20161026760

PATIENT
  Age: 72 Year
  Sex: Female
  Weight: 54.43 kg

DRUGS (5)
  1. PENICILLINE [Concomitant]
     Active Substance: PENICILLIN
     Route: 065
  2. SIMPONI [Suspect]
     Active Substance: GOLIMUMAB
     Indication: RHEUMATOID ARTHRITIS
     Route: 058
  3. FENTANYL. [Concomitant]
     Active Substance: FENTANYL
     Route: 065
  4. DEMEROL [Concomitant]
     Active Substance: MEPERIDINE HYDROCHLORIDE
     Route: 065
  5. MORPHINE [Concomitant]
     Active Substance: MORPHINE
     Route: 065

REACTIONS (5)
  - Productive cough [Unknown]
  - Malaise [Unknown]
  - Lower respiratory tract infection [Unknown]
  - Arthritis [Unknown]
  - Walking aid user [Unknown]
